FAERS Safety Report 13773069 (Version 2)
Quarter: 2018Q2

REPORT INFORMATION
  Report Type: Spontaneous
  Country: CA (occurrence: CA)
  Receive Date: 20170720
  Receipt Date: 20180501
  Transmission Date: 20180711
  Serious: Yes (Other)
  Sender: FDA-Public Use
  Company Number: CA-PFIZER INC-2017307186

PATIENT
  Age: 62 Year
  Sex: Male

DRUGS (6)
  1. DOSTINEX [Concomitant]
     Active Substance: CABERGOLINE
     Dosage: 0.25 MG, 2X PER WEEK (WED AND SAT)
     Route: 048
  2. SOMAVERT [Suspect]
     Active Substance: PEGVISOMANT
     Indication: ACROMEGALY
     Dosage: 30 MG, WEEKLY
     Route: 058
     Dates: start: 20130605
  3. SOMAVERT [Suspect]
     Active Substance: PEGVISOMANT
     Dosage: 20 MG, WEEKLY
     Route: 058
     Dates: start: 201610
  4. SOMATULINE AUTOGEL [Suspect]
     Active Substance: LANREOTIDE ACETATE
     Dosage: 90 MG, EVERY 60 DAYS
     Route: 030
     Dates: start: 20170629, end: 201712
  5. DEPO-TESTOSTERONE [Concomitant]
     Active Substance: TESTOSTERONE CYPIONATE
     Dosage: 25 MG, WEEKLY ON TUESDAYS (0.25 ML OF 100 MG/ML VIAL)
     Route: 058
  6. ASPIRIN 81 [Concomitant]
     Active Substance: ASPIRIN
     Dosage: 81 MG, DAILY
     Route: 048

REACTIONS (3)
  - Drug dose omission [Recovered/Resolved]
  - Inappropriate schedule of drug administration [Unknown]
  - Heart rate decreased [Recovered/Resolved]

NARRATIVE: CASE EVENT DATE: 20170629
